FAERS Safety Report 18782153 (Version 1)
Quarter: 2021Q1

REPORT INFORMATION
  Report Type: Spontaneous
  Country: US (occurrence: US)
  Receive Date: 20210125
  Receipt Date: 20210125
  Transmission Date: 20210419
  Serious: Yes (Disabling, Other)
  Sender: FDA-Public Use
  Company Number: None

PATIENT
  Age: 47 Year
  Sex: Female
  Weight: 56.7 kg

DRUGS (4)
  1. MULTIVITAMIN [Concomitant]
     Active Substance: VITAMINS
  2. PAROEX CHLORHEXIDINE GLUCONATE [Suspect]
     Active Substance: CHLORHEXIDINE GLUCONATE
     Indication: ANTIBIOTIC PROPHYLAXIS
     Dosage: ?          QUANTITY:1 PINT;?
     Route: 048
     Dates: end: 20210104
  3. ESTROGEN [Concomitant]
     Active Substance: ESTROGENS
  4. SYNTHROID [Concomitant]
     Active Substance: LEVOTHYROXINE SODIUM

REACTIONS (8)
  - Oral pain [None]
  - Mastication disorder [None]
  - Cough [None]
  - Oropharyngeal pain [None]
  - Product formulation issue [None]
  - Mouth haemorrhage [None]
  - Mouth ulceration [None]
  - Pyrexia [None]

NARRATIVE: CASE EVENT DATE: 20190107
